FAERS Safety Report 10160203 (Version 1)
Quarter: 2014Q2

REPORT INFORMATION
  Report Type: Spontaneous
  Country: US (occurrence: US)
  Receive Date: 20140508
  Receipt Date: 20140508
  Transmission Date: 20141212
  Serious: No
  Sender: FDA-Public Use
  Company Number: US-BAYER-2014-067711

PATIENT
  Sex: Female

DRUGS (3)
  1. YAZ [Suspect]
  2. B12 [Suspect]
     Dosage: UNK
     Dates: start: 2013
  3. PRENATAL VITAMINS [Suspect]

REACTIONS (4)
  - Dyspnoea [None]
  - Energy increased [None]
  - Sleep apnoea syndrome [None]
  - Overdose [None]
